FAERS Safety Report 6873039-4 (Version None)
Quarter: 2010Q3

REPORT INFORMATION
  Report Type: 
  Country: None (occurrence: None)
  Receive Date: 20100723
  Receipt Date: 20081118
  Transmission Date: 20110219
  Serious: No
  Sender: FDA-Public Use
  Company Number: US-PFIZER INC-2008098635

PATIENT
  Sex: Male
  Weight: 68.04 kg

DRUGS (7)
  1. CHANTIX [Suspect]
     Indication: SMOKING CESSATION THERAPY
     Dates: start: 20081115
  2. PLAVIX [Concomitant]
  3. PRAVASTATIN [Concomitant]
     Indication: BLOOD CHOLESTEROL INCREASED
  4. ASPIRIN [Concomitant]
  5. TOPROL-XL [Concomitant]
     Indication: HYPERTENSION
  6. DRUG, UNSPECIFIED [Concomitant]
     Indication: MYOCARDIAL INFARCTION
  7. LEXAPRO [Concomitant]
     Indication: DEPRESSION

REACTIONS (2)
  - CONFUSIONAL STATE [None]
  - UNEVALUABLE EVENT [None]
